FAERS Safety Report 9131703 (Version 2)
Quarter: 2013Q1

REPORT INFORMATION
  Report Type: Spontaneous
  Country: FR (occurrence: FR)
  Receive Date: 20130301
  Receipt Date: 20130322
  Transmission Date: 20140127
  Serious: Yes (Hospitalization)
  Sender: FDA-Public Use
  Company Number: FR-009507513-1302FRA010631

PATIENT
  Sex: Female

DRUGS (12)
  1. NOROXINE [Suspect]
     Indication: URINARY TRACT INFECTION
     Dosage: UNK
     Route: 048
     Dates: start: 201210, end: 201210
  2. FLAGYL [Suspect]
     Indication: DIARRHOEA
     Dosage: UNK
     Route: 048
     Dates: start: 201211, end: 201211
  3. NIBIOL [Suspect]
     Indication: URINARY TRACT INFECTION
     Dosage: UNK
     Route: 048
     Dates: start: 201210, end: 201210
  4. ZINNAT [Suspect]
     Indication: NASOPHARYNGITIS
     Dosage: UNK
     Route: 048
     Dates: start: 201209, end: 201209
  5. BIPRETERAX (INDAPAMIDE (+) PERINDOPRIL ARGININE) [Concomitant]
     Dosage: UNK
     Dates: start: 2004
  6. LERCAN [Concomitant]
     Dosage: UNK
     Dates: start: 2004
  7. DEROXAT [Concomitant]
  8. ZELITREX [Concomitant]
  9. ZOVIRAX [Concomitant]
  10. ESTRAVAL (ESTRADIOL VALERATE) [Concomitant]
  11. DUPHASTON [Concomitant]
  12. INEXIUM [Concomitant]

REACTIONS (4)
  - Hepatitis [Recovered/Resolved]
  - Jaundice [Recovered/Resolved]
  - Abdominal pain upper [Unknown]
  - Pyrexia [Unknown]
